FAERS Safety Report 9422960 (Version 1)
Quarter: 2013Q3

REPORT INFORMATION
  Report Type: Spontaneous
  Country: BR (occurrence: BR)
  Receive Date: 20130726
  Receipt Date: 20130726
  Transmission Date: 20140515
  Serious: Yes (Hospitalization)
  Sender: FDA-Public Use
  Company Number: BR-ELI_LILLY_AND_COMPANY-BR201307005750

PATIENT
  Age: 53 Year
  Sex: Female
  Weight: 64 kg

DRUGS (2)
  1. GEMZAR [Suspect]
     Indication: BREAST ANGIOSARCOMA
     Dosage: UNK UNK, UNKNOWN
     Route: 065
     Dates: start: 20130305
  2. GEMZAR [Suspect]
     Dosage: UNK, UNKNOWN
     Route: 065

REACTIONS (2)
  - Mesenteric panniculitis [Unknown]
  - Pain [Unknown]
